FAERS Safety Report 18681744 (Version 1)
Quarter: 2020Q4

REPORT INFORMATION
  Report Type: Spontaneous
  Country: US (occurrence: US)
  Receive Date: 20201228
  Receipt Date: 20201228
  Transmission Date: 20210114
  Serious: Yes (Hospitalization)
  Sender: FDA-Public Use
  Company Number: None

PATIENT
  Age: 92 Year
  Sex: Male
  Weight: 96.62 kg

DRUGS (1)
  1. DONEPEZIL. [Suspect]
     Active Substance: DONEPEZIL
     Indication: BRADYCARDIA
     Dosage: ?          OTHER DOSE:1 TABLET ;?
     Route: 048
     Dates: start: 20100101, end: 20201104

REACTIONS (2)
  - Bradycardia [None]
  - Atrioventricular block complete [None]

NARRATIVE: CASE EVENT DATE: 20201105
